FAERS Safety Report 9532974 (Version 1)
Quarter: 2013Q3

REPORT INFORMATION
  Report Type: Spontaneous
  Country: US (occurrence: US)
  Receive Date: 20130918
  Receipt Date: 20130918
  Transmission Date: 20140515
  Serious: No
  Sender: FDA-Public Use
  Company Number: US-PURDUE-USA-2011-0076785

PATIENT
  Sex: Female
  Weight: 43 kg

DRUGS (1)
  1. BUTRANS [Suspect]
     Indication: PAIN
     Dosage: 20 MCG, Q1H
     Route: 062
     Dates: start: 201107, end: 201108

REACTIONS (3)
  - Application site vesicles [Recovered/Resolved]
  - Application site erosion [Recovered/Resolved]
  - Local swelling [Recovered/Resolved]
